FAERS Safety Report 6631864-9 (Version None)
Quarter: 2010Q1

REPORT INFORMATION
  Report Type: 
  Country: None (occurrence: None)
  Receive Date: 20100312
  Receipt Date: 20100309
  Transmission Date: 20100710
  Serious: Yes (Other)
  Sender: FDA-Public Use
  Company Number: GB-ASTRAZENECA-2010SE04663

PATIENT
  Sex: Female

DRUGS (3)
  1. FELENDIL XL [Suspect]
     Indication: ESSENTIAL HYPERTENSION
     Route: 048
  2. BENDROFLUMETHIAZIDE [Concomitant]
  3. OMEPRAZOLE [Concomitant]

REACTIONS (1)
  - BLOOD PRESSURE INCREASED [None]
